FAERS Safety Report 8052793 (Version 2)
Quarter: 2014Q2

REPORT INFORMATION
  Report Type: Spontaneous
  Country: US (occurrence: US)
  Receive Date: 20110725
  Receipt Date: 20140522
  Transmission Date: 20141212
  Serious: Yes (Hospitalization)
  Sender: FDA-Public Use
  Company Number: US-GLAXOSMITHKLINE-A0884867A

PATIENT
  Age: 52 Year
  Sex: Male
  Weight: 80.9 kg

DRUGS (4)
  1. AVANDIA [Suspect]
     Indication: TYPE 2 DIABETES MELLITUS
     Dosage: 4MG TWICE PER DAY
     Route: 048
     Dates: start: 20040304, end: 20070524
  2. GLUCOVANCE [Concomitant]
  3. NEURONTIN [Concomitant]
  4. LIPITOR [Concomitant]

REACTIONS (3)
  - Cerebrovascular accident [Not Recovered/Not Resolved]
  - Transient ischaemic attack [Unknown]
  - Paralysis [Unknown]
